FAERS Safety Report 7286144-8 (Version None)
Quarter: 2011Q1

REPORT INFORMATION
  Report Type: 
  Country: None (occurrence: None)
  Receive Date: 20110210
  Receipt Date: 20110128
  Transmission Date: 20110831
  Serious: Yes (Life-Threatening)
  Sender: FDA-Public Use
  Company Number: DE-MYLANLABS-2011S1002171

PATIENT
  Sex: Female

DRUGS (9)
  1. AMLODIPINE [Concomitant]
  2. VALSARTAN [Concomitant]
  3. HEPARIN [Concomitant]
  4. CALCITRIOL AFT [Concomitant]
  5. CYSTAGON [Suspect]
     Route: 048
     Dates: end: 20110122
  6. DEXAMETHASONE [Concomitant]
  7. CYSTAGON [Suspect]
     Indication: CYSTINOSIS
     Route: 048
  8. ATENOLOL [Concomitant]
  9. CALCIUM ACETATE NEPHRO [Concomitant]

REACTIONS (2)
  - DISTURBANCE IN ATTENTION [None]
  - EPILEPSY [None]
